FAERS Safety Report 5162936-6 (Version None)
Quarter: 2006Q4

REPORT INFORMATION
  Report Type: 
  Country: None (occurrence: None)
  Receive Date: 20061201
  Receipt Date: 20061122
  Transmission Date: 20070319
  Serious: Yes (Hospitalization)
  Sender: FDA-Public Use
  Company Number: 2006UW26427

PATIENT
  Age: 23832 Day
  Sex: Male
  Weight: 116 kg

DRUGS (41)
  1. SYMBICORT PMDI [Suspect]
     Indication: CHRONIC OBSTRUCTIVE PULMONARY DISEASE
     Dosage: 2 X (80/4.5 MCG) BID
     Route: 055
     Dates: start: 20060316, end: 20060731
  2. VITAMIN B-12 [Concomitant]
     Route: 048
  3. ASCORBIC ACID [Concomitant]
     Route: 048
  4. FOLIC ACID [Concomitant]
     Route: 048
  5. SIMVASTATIN [Concomitant]
     Indication: HYPERCHOLESTEROLAEMIA
     Route: 048
  6. FUROSEMIDE [Concomitant]
     Indication: DIURETIC THERAPY
     Route: 048
     Dates: end: 20060807
  7. SPIRONOLACTONE [Concomitant]
     Indication: HYPERTENSION
     Route: 048
  8. ATENOLOL [Concomitant]
     Indication: HYPERTENSION
     Route: 048
     Dates: start: 20060807
  9. ATENOLOL [Concomitant]
     Route: 048
     Dates: start: 20060807, end: 20060811
  10. ATENOLOL [Concomitant]
     Route: 048
     Dates: start: 20060812
  11. FELODIPINE [Concomitant]
     Indication: HYPERTENSION
     Route: 048
  12. PRILOSEC [Concomitant]
     Indication: GASTROOESOPHAGEAL REFLUX DISEASE
     Route: 048
  13. VISTARIL [Concomitant]
     Indication: ANXIETY
     Route: 048
     Dates: start: 20060101, end: 20060807
  14. VISTARIL [Concomitant]
     Route: 048
     Dates: start: 20060807
  15. ATROVENT [Concomitant]
     Indication: CHRONIC OBSTRUCTIVE PULMONARY DISEASE
     Route: 055
     Dates: start: 20060227, end: 20060820
  16. STUDY ALBUTEROL [Concomitant]
     Indication: CHRONIC OBSTRUCTIVE PULMONARY DISEASE
     Route: 055
     Dates: start: 20060316, end: 20060801
  17. FOLATE [Concomitant]
     Indication: ALCOHOLISM
     Route: 042
     Dates: start: 20060803, end: 20060807
  18. FOLATE [Concomitant]
     Route: 048
     Dates: start: 20060807
  19. THIAMINE [Concomitant]
     Indication: ALCOHOLISM
     Route: 042
     Dates: start: 20060803, end: 20060807
  20. THIAMINE [Concomitant]
     Route: 048
     Dates: start: 20060807
  21. NEXIUM [Concomitant]
     Indication: GASTROOESOPHAGEAL REFLUX DISEASE
     Route: 048
     Dates: start: 20060803
  22. ATIVAN [Concomitant]
     Indication: ALCOHOLISM
     Route: 048
     Dates: start: 20060803
  23. ASPIRIN [Concomitant]
     Indication: HYPERTENSION
     Route: 048
     Dates: start: 20060807
  24. PAXIL [Concomitant]
     Indication: ANXIETY
     Route: 048
     Dates: start: 20060807
  25. DIOVAN [Concomitant]
     Indication: HYPERTENSION
     Route: 048
     Dates: start: 20060807, end: 20060811
  26. DIOVAN [Concomitant]
     Route: 048
     Dates: start: 20060812
  27. IMDUR [Concomitant]
     Indication: HYPERTENSION
     Route: 048
     Dates: start: 20060807, end: 20060811
  28. AMBIEN [Concomitant]
     Indication: INSOMNIA
     Route: 048
     Dates: start: 20060807
  29. SOLU-MEDROL [Concomitant]
     Indication: CHRONIC OBSTRUCTIVE PULMONARY DISEASE
     Route: 042
     Dates: start: 20060725, end: 20060728
  30. SOLU-MEDROL [Concomitant]
     Route: 042
     Dates: start: 20060803, end: 20060807
  31. AZITHROMYCIN [Concomitant]
     Indication: CHRONIC OBSTRUCTIVE PULMONARY DISEASE
     Route: 042
     Dates: start: 20060725, end: 20060728
  32. DUONEB [Concomitant]
     Indication: CHRONIC OBSTRUCTIVE PULMONARY DISEASE
     Route: 055
     Dates: start: 20060725
  33. MUCINEX [Concomitant]
     Indication: CHRONIC OBSTRUCTIVE PULMONARY DISEASE
     Route: 048
     Dates: start: 20060725, end: 20060803
  34. PREDNISONE TAB [Concomitant]
     Indication: CHRONIC OBSTRUCTIVE PULMONARY DISEASE
     Route: 048
     Dates: start: 20060728, end: 20060730
  35. PREDNISONE TAB [Concomitant]
     Route: 048
     Dates: start: 20060731, end: 20060802
  36. PREDNISONE TAB [Concomitant]
     Route: 048
     Dates: start: 20060807, end: 20060810
  37. PREDNISONE TAB [Concomitant]
     Route: 048
     Dates: start: 20060811, end: 20060813
  38. PREDNISONE TAB [Concomitant]
     Route: 048
     Dates: start: 20060814, end: 20060816
  39. PREDNISONE TAB [Concomitant]
     Route: 048
     Dates: start: 20060817, end: 20060819
  40. ADVAIR DISKUS 100/50 [Concomitant]
     Indication: CHRONIC OBSTRUCTIVE PULMONARY DISEASE
     Route: 055
     Dates: start: 20060803
  41. AVELOX [Concomitant]
     Indication: CHRONIC OBSTRUCTIVE PULMONARY DISEASE
     Route: 042
     Dates: start: 20060803, end: 20060807

REACTIONS (4)
  - BLOOD SODIUM DECREASED [None]
  - CHRONIC OBSTRUCTIVE PULMONARY DISEASE [None]
  - CONDITION AGGRAVATED [None]
  - WHEEZING [None]
